FAERS Safety Report 6536550-1 (Version None)
Quarter: 2009Q4

REPORT INFORMATION
  Report Type: 
  Country: None (occurrence: None)
  Receive Date: 20091229
  Receipt Date: 20090930
  Transmission Date: 20100525
  Serious: No
  Sender: FDA-Public Use
  Company Number: 1000009186

PATIENT
  Age: 25 Year
  Sex: Female

DRUGS (2)
  1. BYSTOLIC [Suspect]
     Indication: HYPERTENSION
     Dosage: 5 MG, ORAL
     Route: 048
  2. BYSTOLIC [Suspect]
     Indication: TACHYCARDIA
     Dosage: 5 MG, ORAL
     Route: 048

REACTIONS (1)
  - HEART RATE DECREASED [None]
